FAERS Safety Report 19808164 (Version 1)
Quarter: 2021Q3

REPORT INFORMATION
  Report Type: Other
  Country: GB (occurrence: GB)
  Receive Date: 20210909
  Receipt Date: 20210909
  Transmission Date: 20211014
  Serious: No
  Sender: FDA-Public Use
  Company Number: GB-LUPIN PHARMACEUTICALS INC.-2021-16791

PATIENT
  Age: 57 Year
  Sex: Male
  Weight: 100 kg

DRUGS (3)
  1. OMEPRAZOLE. [Concomitant]
     Active Substance: OMEPRAZOLE
     Indication: ILL-DEFINED DISORDER
     Dosage: 01 DOSAGE FORM
     Route: 065
     Dates: start: 20210110
  2. BUPROPION. [Concomitant]
     Active Substance: BUPROPION
     Indication: ILL-DEFINED DISORDER
     Dosage: 01 DOSAGE FORM, QD
     Route: 065
     Dates: start: 20210823
  3. SERTRALINE [Suspect]
     Active Substance: SERTRALINE HYDROCHLORIDE
     Indication: PRODUCT USED FOR UNKNOWN INDICATION
     Dosage: 100 MILLIGRAM, QD
     Route: 065
     Dates: start: 20210110

REACTIONS (1)
  - Drug hypersensitivity [Unknown]

NARRATIVE: CASE EVENT DATE: 20210824
